FAERS Safety Report 24908854 (Version 1)
Quarter: 2025Q1

REPORT INFORMATION
  Report Type: Spontaneous
  Country: FR (occurrence: FR)
  Receive Date: 20250131
  Receipt Date: 20250131
  Transmission Date: 20250408
  Serious: Yes (Other)
  Sender: HIKMA
  Company Number: None

PATIENT
  Age: 87 Year
  Sex: Female
  Weight: 65 kg

DRUGS (7)
  1. ALTEPLASE [Suspect]
     Active Substance: ALTEPLASE
     Indication: Thrombolysis
     Route: 042
     Dates: start: 20241213, end: 20241213
  2. PROPOFOL [Suspect]
     Active Substance: PROPOFOL
     Indication: Induction of anaesthesia
     Route: 042
     Dates: start: 20241213, end: 20241213
  3. ROCURONIUM [Suspect]
     Active Substance: ROCURONIUM BROMIDE
     Indication: Induction of anaesthesia
     Route: 042
     Dates: start: 20241213, end: 20241213
  4. SEVOFLURANE [Suspect]
     Active Substance: SEVOFLURANE
     Indication: Neuromuscular blockade reversal
     Route: 065
     Dates: start: 20241213, end: 20241213
  5. SUFENTANIL CITRATE [Suspect]
     Active Substance: SUFENTANIL CITRATE
     Indication: Induction of anaesthesia
     Route: 042
     Dates: start: 20241213, end: 20241213
  6. SUGAMMADEX SODIUM [Suspect]
     Active Substance: SUGAMMADEX SODIUM
     Indication: Neuromuscular blockade reversal
     Route: 042
     Dates: start: 20241213, end: 20241213
  7. VISIPAQUE [Suspect]
     Active Substance: IODIXANOL
     Indication: Thrombectomy
     Route: 042
     Dates: start: 20241213, end: 20241213

REACTIONS (1)
  - Circumoral oedema [Recovered/Resolved]

NARRATIVE: CASE EVENT DATE: 20241213
